FAERS Safety Report 12923138 (Version 2)
Quarter: 2016Q4

REPORT INFORMATION
  Report Type: Spontaneous
  Country: DE (occurrence: DE)
  Receive Date: 20161109
  Receipt Date: 20161221
  Transmission Date: 20170207
  Serious: Yes (Other)
  Sender: FDA-Public Use
  Company Number: DE-SUN PHARMACEUTICAL INDUSTRIES LTD-2016R1-126798

PATIENT
  Age: 33 Year
  Sex: Female

DRUGS (2)
  1. DEXAMETHASONE. [Suspect]
     Active Substance: DEXAMETHASONE
     Indication: OEDEMA
     Dosage: 20 MG FOLLOWED BY 4X8 MG PER DAY
     Route: 065
  2. DEXAMETHASONE. [Suspect]
     Active Substance: DEXAMETHASONE
     Dosage: 4X6 MG PER DAY AND TAPERING
     Route: 065

REACTIONS (7)
  - Exposure during pregnancy [Unknown]
  - Foetal placental thrombosis [Unknown]
  - Paraplegia [Unknown]
  - Abortion induced [Unknown]
  - Placental insufficiency [Unknown]
  - Spinal cord haemorrhage [Unknown]
  - Congenital anomaly [Unknown]
